FAERS Safety Report 7714618-1 (Version None)
Quarter: 2011Q3

REPORT INFORMATION
  Report Type: 
  Country: None (occurrence: None)
  Receive Date: 20110829
  Receipt Date: 20110825
  Transmission Date: 20111222
  Serious: No
  Sender: FDA-Public Use
  Company Number: US-PFIZER INC-2011197901

PATIENT
  Sex: Female
  Weight: 74.8 kg

DRUGS (3)
  1. PREMPRO [Suspect]
     Indication: MENOPAUSE
     Dosage: 0.3/1.5 MG, 1 DAILY
     Route: 048
  2. ROZEREM [Suspect]
     Indication: SLEEP DISORDER
     Dosage: 8 MG, AT BEDTIME
     Route: 048
     Dates: start: 20110725, end: 20110729
  3. ZOLOFT [Concomitant]
     Indication: DEPRESSION
     Dosage: 100 MG, EVERY MORNING
     Route: 048
     Dates: start: 20110501

REACTIONS (3)
  - MENSTRUAL DISORDER [None]
  - DIARRHOEA [None]
  - MIDDLE INSOMNIA [None]
